FAERS Safety Report 11170442 (Version 2)
Quarter: 2015Q2

REPORT INFORMATION
  Report Type: Report from Study
  Country: CA (occurrence: CA)
  Receive Date: 20150608
  Receipt Date: 20150611
  Transmission Date: 20150821
  Serious: Yes (Hospitalization, Other)
  Sender: FDA-Public Use
  Company Number: CA-JNJFOC-20150601209

PATIENT
  Age: 16 Year
  Sex: Male
  Weight: 89 kg

DRUGS (2)
  1. REMICADE [Suspect]
     Active Substance: INFLIXIMAB
     Indication: CROHN^S DISEASE
     Route: 042
  2. REMICADE [Suspect]
     Active Substance: INFLIXIMAB
     Indication: CROHN^S DISEASE
     Route: 042
     Dates: start: 20130426, end: 20150411

REACTIONS (2)
  - Anal abscess [Unknown]
  - Fistula [Unknown]

NARRATIVE: CASE EVENT DATE: 20150509
